FAERS Safety Report 9302033 (Version 1)
Quarter: 2013Q2

REPORT INFORMATION
  Report Type: Spontaneous
  Country: SE (occurrence: SE)
  Receive Date: 20130521
  Receipt Date: 20130521
  Transmission Date: 20140414
  Serious: Yes (Death, Other)
  Sender: FDA-Public Use
  Company Number: SE-B.I. PHARMACEUTICALS,INC./RIDGEFIELD-2013-SW-00274SW

PATIENT
  Age: 74 Year
  Sex: Male

DRUGS (3)
  1. PRADAXA [Suspect]
     Indication: THROMBOSIS PROPHYLAXIS
     Dosage: 220 MG
     Route: 048
     Dates: start: 20130129, end: 20130302
  2. CIPROFLOXACIN [Concomitant]
  3. AMOXICILLIN [Concomitant]

REACTIONS (1)
  - Cerebral haemorrhage [Fatal]
